FAERS Safety Report 16367003 (Version 1)
Quarter: 2019Q2

REPORT INFORMATION
  Report Type: Spontaneous
  Country: US (occurrence: US)
  Receive Date: 20190422
  Receipt Date: 20190422
  Transmission Date: 20190711
  Serious: Yes (Hospitalization)
  Sender: FDA-Public Use
  Company Number: None

PATIENT
  Age: 71 Year
  Sex: Female

DRUGS (11)
  1. ASPIRIN. [Concomitant]
     Active Substance: ASPIRIN
  2. ALLOPURINOL. [Concomitant]
     Active Substance: ALLOPURINOL
  3. FOSAMAX [Concomitant]
     Active Substance: ALENDRONATE SODIUM
  4. LISINOPRIL. [Concomitant]
     Active Substance: LISINOPRIL
  5. PREDNISONE. [Concomitant]
     Active Substance: PREDNISONE
  6. HYDROXYCHLOROQUINE [Concomitant]
     Active Substance: HYDROXYCHLOROQUINE
  7. ATENOLOL. [Concomitant]
     Active Substance: ATENOLOL
  8. CELLCEPT [Concomitant]
     Active Substance: MYCOPHENOLATE MOFETIL\MYCOPHENOLATE MOFETIL HYDROCHLORIDE
  9. OPSUMIT [Suspect]
     Active Substance: MACITENTAN
     Indication: PULMONARY HYPERTENSION
     Route: 048
     Dates: start: 201810
  10. AMLODIPINE [Concomitant]
     Active Substance: AMLODIPINE BESYLATE
  11. VENTOLIN HFA [Concomitant]
     Active Substance: ALBUTEROL SULFATE

REACTIONS (1)
  - Pneumonia [None]

NARRATIVE: CASE EVENT DATE: 20190315
